FAERS Safety Report 15580462 (Version 3)
Quarter: 2019Q1

REPORT INFORMATION
  Report Type: Report from Study
  Country: US (occurrence: US)
  Receive Date: 20181102
  Receipt Date: 20190213
  Transmission Date: 20190417
  Serious: Yes (Hospitalization)
  Sender: FDA-Public Use
  Company Number: US-ACTELION-A-NJ2018-180982

PATIENT
  Age: 63 Year
  Sex: Female

DRUGS (4)
  1. ZETIA [Concomitant]
     Active Substance: EZETIMIBE
  2. TRACLEER [Suspect]
     Active Substance: BOSENTAN
     Indication: PULMONARY ARTERIAL HYPERTENSION
     Dosage: 125 MG, UNK
     Route: 048
  3. PREVACID [Concomitant]
     Active Substance: LANSOPRAZOLE
  4. GLIPIZIDE. [Concomitant]
     Active Substance: GLIPIZIDE

REACTIONS (5)
  - Gastrointestinal haemorrhage [Unknown]
  - Carotid endarterectomy [Unknown]
  - Carotid artery occlusion [Unknown]
  - Retinal vascular occlusion [Unknown]
  - Hospitalisation [Recovered/Resolved]
